FAERS Safety Report 14072981 (Version 1)
Quarter: 2017Q4

REPORT INFORMATION
  Report Type: Spontaneous
  Country: US (occurrence: US)
  Receive Date: 20171010
  Receipt Date: 20171010
  Transmission Date: 20180321
  Serious: No
  Sender: FDA-Public Use
  Company Number: US-JNJFOC-20170828419

PATIENT
  Age: 3 Decade
  Sex: Female
  Weight: 54.43 kg

DRUGS (2)
  1. MOTRIN IB [Suspect]
     Active Substance: IBUPROFEN
     Route: 048
  2. MOTRIN IB [Suspect]
     Active Substance: IBUPROFEN
     Indication: HEADACHE
     Dosage: 1 TABLET EVERY 2 TO 3 DAYS, EACH TIME FROM A DIFFERENT BOTTLE (5 BOTTLES)
     Route: 048
     Dates: start: 201707

REACTIONS (3)
  - Headache [Recovered/Resolved]
  - Nausea [Recovered/Resolved]
  - Abdominal pain upper [Recovered/Resolved]

NARRATIVE: CASE EVENT DATE: 201707
